FAERS Safety Report 8106059-2 (Version None)
Quarter: 2012Q1

REPORT INFORMATION
  Report Type: 
  Country: None (occurrence: None)
  Receive Date: 20120202
  Receipt Date: 20120126
  Transmission Date: 20120608
  Serious: No
  Sender: FDA-Public Use
  Company Number: US-PFIZER INC-2012022814

PATIENT
  Sex: Female

DRUGS (1)
  1. SUTENT [Suspect]
     Indication: RENAL CANCER
     Dosage: 50 MG, UNK
     Dates: start: 20111207

REACTIONS (5)
  - PALMAR-PLANTAR ERYTHRODYSAESTHESIA SYNDROME [None]
  - GLOSSODYNIA [None]
  - DIARRHOEA [None]
  - RASH [None]
  - ASTHENIA [None]
